FAERS Safety Report 13117096 (Version 1)
Quarter: 2017Q1

REPORT INFORMATION
  Report Type: Spontaneous
  Country: ES (occurrence: ES)
  Receive Date: 20170116
  Receipt Date: 20170116
  Transmission Date: 20170428
  Serious: Yes (Hospitalization, Other)
  Sender: FDA-Public Use
  Company Number: ES-APOPHARMA USA, INC.-2017AP005077

PATIENT
  Age: 10 Month
  Sex: Male

DRUGS (3)
  1. ATG                                /00575401/ [Concomitant]
     Active Substance: LAPINE T-LYMPHOCYTE IMMUNE GLOBULIN
     Indication: SURGICAL PRECONDITIONING
     Route: 065
  2. FLUDARABINE [Concomitant]
     Active Substance: FLUDARABINE PHOSPHATE
     Indication: SURGICAL PRECONDITIONING
     Route: 065
  3. ALKERAN [Suspect]
     Active Substance: MELPHALAN
     Indication: SURGICAL PRECONDITIONING
     Dosage: UNK
     Route: 065

REACTIONS (6)
  - Immune thrombocytopenic purpura [Unknown]
  - Malnutrition [Unknown]
  - Acute graft versus host disease in liver [Unknown]
  - Bacterial sepsis [Unknown]
  - Viral diarrhoea [Unknown]
  - Respiratory tract infection viral [Unknown]
